FAERS Safety Report 8051582-2 (Version None)
Quarter: 2012Q1

REPORT INFORMATION
  Report Type: 
  Country: None (occurrence: None)
  Receive Date: 20120118
  Receipt Date: 20120106
  Transmission Date: 20120608
  Serious: Yes (Other)
  Sender: FDA-Public Use
  Company Number: BR-AMGEN-BRASP2012001843

PATIENT
  Age: 54 Year
  Sex: Female
  Weight: 55 kg

DRUGS (9)
  1. FORMOTEROL FUMARATE [Concomitant]
     Dosage: UNK
  2. ATENOLOL [Concomitant]
     Dosage: UNK
  3. SIMVASTATIN [Concomitant]
     Dosage: UNK
  4. FLUOXETINE [Concomitant]
     Dosage: UNK
  5. PREDNISONE [Concomitant]
     Dosage: UNK
  6. CAPTOPRIL [Concomitant]
     Dosage: UNK
  7. ENBREL [Suspect]
     Indication: RHEUMATOID ARTHRITIS
     Dosage: 50 MG, WEEKLY
     Route: 058
     Dates: start: 20110501
  8. METHOTREXATE [Concomitant]
     Dosage: UNK UNK, UNK
  9. ASPIRIN [Concomitant]
     Dosage: UNK

REACTIONS (5)
  - VENOUS OCCLUSION [None]
  - PAIN [None]
  - OEDEMA PERIPHERAL [None]
  - INJECTION SITE PAIN [None]
  - DRUG INEFFECTIVE [None]
